FAERS Safety Report 4695395-8 (Version None)
Quarter: 2005Q2

REPORT INFORMATION
  Report Type: 
  Country: None (occurrence: None)
  Receive Date: 20050302
  Receipt Date: 20050302
  Transmission Date: 20051028
  Serious: No
  Sender: FDA-Public Use
  Company Number: None

PATIENT
  Sex: Female
  Weight: 92.0802 kg

DRUGS (1)
  1. GENGRAF [Suspect]
     Indication: HEART TRANSPLANT
     Dosage: 25MG 2 QAM, 3 QPM
     Dates: start: 20040901, end: 20041001

REACTIONS (3)
  - ABDOMINAL DISCOMFORT [None]
  - IMMUNOSUPPRESSANT DRUG LEVEL INCREASED [None]
  - THERAPEUTIC RESPONSE UNEXPECTED WITH DRUG SUBSTITUTION [None]
